FAERS Safety Report 9355768 (Version 1)
Quarter: 2013Q2

REPORT INFORMATION
  Report Type: Spontaneous
  Country: US (occurrence: US)
  Receive Date: 20130619
  Receipt Date: 20130619
  Transmission Date: 20140414
  Serious: No
  Sender: FDA-Public Use
  Company Number: US-PFIZER INC-2013179129

PATIENT
  Sex: Female

DRUGS (8)
  1. FLAGYL [Suspect]
     Dosage: UNK
  2. CEFUROXIME [Suspect]
     Dosage: UNK
  3. VANCOMYCIN HCL [Suspect]
     Dosage: UNK
  4. CIPROFLOXACIN [Suspect]
     Dosage: UNK
  5. AUGMENTIN [Suspect]
     Dosage: UNK
  6. BACLOFEN [Suspect]
     Dosage: UNK
  7. BIAXIN [Suspect]
     Dosage: UNK
  8. CODEINE [Suspect]
     Dosage: UNK

REACTIONS (1)
  - Drug hypersensitivity [Unknown]
